FAERS Safety Report 6189738-6 (Version None)
Quarter: 2009Q2

REPORT INFORMATION
  Report Type: 
  Country: None (occurrence: None)
  Receive Date: 20090514
  Receipt Date: 20090507
  Transmission Date: 20091009
  Serious: Yes (Other)
  Sender: FDA-Public Use
  Company Number: DE-ROCHE-631979

PATIENT
  Age: 71 Year
  Sex: Male

DRUGS (5)
  1. CELLCEPT [Suspect]
     Indication: RENAL TRANSPLANT
     Route: 065
     Dates: start: 20050101
  2. TACROLIMUS [Suspect]
     Indication: RENAL TRANSPLANT
     Route: 065
     Dates: start: 20050101
  3. NORVASC [Concomitant]
     Dates: start: 19950101
  4. ATACAND [Concomitant]
     Dates: start: 19950101
  5. ZOCOR [Concomitant]
     Dates: start: 19950101

REACTIONS (3)
  - HEPATIC CIRRHOSIS [None]
  - HEPATIC FIBROSIS [None]
  - PELIOSIS HEPATIS [None]
